FAERS Safety Report 6024124-0 (Version None)
Quarter: 2008Q4

REPORT INFORMATION
  Report Type: 
  Country: None (occurrence: None)
  Receive Date: 20081230
  Receipt Date: 20081224
  Transmission Date: 20090506
  Serious: Yes (Life-Threatening, Hospitalization, Other)
  Sender: FDA-Public Use
  Company Number: BE-ABBOTT-07P-013-0422681-00

PATIENT
  Sex: Female

DRUGS (16)
  1. HUMIRA [Suspect]
     Indication: RHEUMATOID ARTHRITIS
     Dates: start: 20070415, end: 20070920
  2. HUMIRA [Suspect]
  3. LEDERTREXATE [Suspect]
     Indication: RHEUMATOID ARTHRITIS
     Route: 048
  4. LEDERTREXATE [Suspect]
  5. PREDNISOLONE [Concomitant]
     Indication: RHEUMATOID ARTHRITIS
     Route: 048
  6. PREDNISOLONE [Concomitant]
  7. IBUPROFEN TABLETS [Concomitant]
     Indication: RHEUMATOID ARTHRITIS
     Route: 048
  8. SIMVASTATIN [Concomitant]
     Indication: DRUG USE FOR UNKNOWN INDICATION
  9. ZESTRIL [Concomitant]
     Indication: DRUG USE FOR UNKNOWN INDICATION
  10. AMLOR [Concomitant]
     Indication: DRUG USE FOR UNKNOWN INDICATION
  11. TENORETIC 100 [Concomitant]
     Indication: DRUG USE FOR UNKNOWN INDICATION
  12. ASAFLOW [Concomitant]
     Indication: DRUG USE FOR UNKNOWN INDICATION
  13. HALOPERIDOL [Concomitant]
     Indication: DRUG USE FOR UNKNOWN INDICATION
  14. SPAGALAX [Concomitant]
     Indication: DRUG USE FOR UNKNOWN INDICATION
  15. LACTULOSE [Concomitant]
     Indication: DRUG USE FOR UNKNOWN INDICATION
  16. CELEBREX [Concomitant]
     Indication: DRUG USE FOR UNKNOWN INDICATION

REACTIONS (5)
  - HAEMORRHAGE [None]
  - INFECTION [None]
  - METASTASES TO LIVER [None]
  - METASTASIS [None]
  - RECTAL NEOPLASM [None]
